FAERS Safety Report 6900482-7 (Version None)
Quarter: 2010Q3

REPORT INFORMATION
  Report Type: 
  Country: None (occurrence: None)
  Receive Date: 20100803
  Receipt Date: 20100722
  Transmission Date: 20110219
  Serious: Yes (Death)
  Sender: FDA-Public Use
  Company Number: FR-PFIZER INC-2010091849

PATIENT
  Age: 68 Year
  Sex: Female
  Weight: 65 kg

DRUGS (26)
  1. ANIDULAFUNGIN [Suspect]
     Indication: ASPERGILLOSIS
     Dosage: 100 MG, 1X/DAY
     Route: 042
     Dates: start: 20100721
  2. VORICONAZOLE [Suspect]
     Indication: ASPERGILLOSIS
     Dosage: 360 MG, 2X/DAY
     Route: 042
     Dates: start: 20100718, end: 20100718
  3. VORICONAZOLE [Suspect]
     Dosage: 200 MG, 2X/DAY
     Route: 042
     Dates: start: 20100719, end: 20100720
  4. VORICONAZOLE [Suspect]
     Dosage: 260 MG, 1X/DAY
     Route: 042
     Dates: start: 20100721
  5. CORGARD [Suspect]
     Indication: HYPERTENSION
     Dosage: 80 MG, 2X/DAY
     Route: 048
     Dates: start: 20070101
  6. FLUCONAZOLE [Concomitant]
     Indication: PROPHYLAXIS
     Dosage: 200 MG, 2X/DAY
     Route: 048
     Dates: start: 20100714, end: 20100721
  7. METHYLPREDNISOLONE [Concomitant]
     Indication: PULMONARY OEDEMA
     Dosage: 60 MG, 1X/DAY
     Route: 042
     Dates: start: 20100719, end: 20100719
  8. FUROSEMIDE [Concomitant]
     Indication: PULMONARY OEDEMA
     Dosage: 100 MG, 2X/DAY
     Route: 042
     Dates: start: 20100719, end: 20100719
  9. PIPERACILLIN AND TAZOBACTAM [Concomitant]
     Indication: PYREXIA
     Dosage: 4 G, 3X/DAY
     Route: 042
     Dates: start: 20100714, end: 20100722
  10. VANCOMYCIN [Concomitant]
     Indication: PYREXIA
     Dosage: 3 G, 1X/DAY
     Route: 042
     Dates: start: 20100714
  11. ACYCLOVIR [Concomitant]
     Indication: PYREXIA
     Dosage: 500 MG, 3X/DAY
     Route: 042
     Dates: start: 20100715
  12. ESOMEPRAZOLE [Concomitant]
     Indication: GASTRITIS
     Dosage: 40 MG, 1X/DAY
     Route: 042
     Dates: start: 20100708
  13. PARACETAMOL [Concomitant]
     Indication: PYREXIA
     Dosage: 1 G, ONE TO FOUR TIMES DAILY
     Route: 042
     Dates: start: 20100714
  14. VITAMIN K TAB [Concomitant]
     Indication: PROTHROMBIN TIME PROLONGED
     Dosage: 1 MG, 1X/DAY
     Route: 042
     Dates: start: 20100714
  15. GLIBENCLAMIDE [Concomitant]
     Indication: DIABETES MELLITUS
     Dosage: 5 MG, 3X/DAY
     Route: 048
     Dates: start: 20100714
  16. METRONIDAZOLE [Concomitant]
     Indication: PYREXIA
     Dosage: 500 MG, 3X/DAY
     Route: 048
     Dates: start: 20100714
  17. COAPROVEL [Concomitant]
     Indication: HYPERTENSION
     Dosage: 300/125 MG, 1X/DAY
     Route: 048
     Dates: start: 20100714
  18. AMIKACIN [Concomitant]
     Indication: PYREXIA
     Dosage: 1 G, 1X/DAY
     Route: 042
     Dates: start: 20100714, end: 20100717
  19. AMIKACIN [Concomitant]
     Dosage: 700 MG, 1X/DAY
     Route: 042
     Dates: start: 20100719, end: 20100719
  20. INSULIN [Concomitant]
     Indication: DIABETES MELLITUS
     Dosage: 10 IU, AS NEEDED
     Route: 058
     Dates: start: 20100714
  21. PICLOXYDINE [Concomitant]
     Indication: CONJUNCTIVITIS
     Dosage: 3 GTT, 1X/DAY
     Route: 061
     Dates: start: 20100718, end: 20100718
  22. PRAVASTATIN [Concomitant]
     Indication: HYPERCHOLESTEROLAEMIA
     Dosage: 20 MG, 1X/DAY
     Route: 048
     Dates: start: 20021212, end: 20100718
  23. POTASSIUM CHLORIDE [Concomitant]
     Indication: HYPOKALAEMIA
     Dosage: 4 G, UNK
     Route: 041
     Dates: start: 20100714, end: 20100720
  24. POTASSIUM CHLORIDE [Concomitant]
     Dosage: 5 G, 1X/DAY
     Route: 042
     Dates: start: 20100721, end: 20100721
  25. POTASSIUM CHLORIDE [Concomitant]
     Dosage: 4 G, 2X/DAY
     Route: 042
     Dates: start: 20100722, end: 20100722
  26. SODIUM CHLORIDE [Concomitant]
     Indication: HYPONATRAEMIA
     Dosage: 8 G, UNK
     Route: 041
     Dates: start: 20100714

REACTIONS (1)
  - BRADYCARDIA [None]
